FAERS Safety Report 6079961-3 (Version None)
Quarter: 2009Q1

REPORT INFORMATION
  Report Type: 
  Country: None (occurrence: None)
  Receive Date: 20090217
  Receipt Date: 20090205
  Transmission Date: 20090719
  Serious: Yes (Death, Other)
  Sender: FDA-Public Use
  Company Number: JP-PFIZER INC-2008063925

PATIENT
  Sex: Female
  Weight: 40 kg

DRUGS (16)
  1. SILDENAFIL CITRATE [Suspect]
     Indication: PULMONARY HYPERTENSION
     Dosage: UNK
     Route: 048
     Dates: start: 20080708, end: 20080721
  2. LASIX [Concomitant]
     Dosage: UNK
     Route: 042
     Dates: start: 20080702, end: 20080709
  3. ALDACTONE [Concomitant]
     Route: 048
  4. DORNER [Concomitant]
     Route: 048
     Dates: start: 20080708
  5. WARFARIN SODIUM [Concomitant]
     Route: 048
  6. MIDAZOLAM [Concomitant]
     Dates: start: 20080710, end: 20080714
  7. DIGOXIN [Concomitant]
     Route: 048
     Dates: start: 20080708
  8. HANP [Concomitant]
     Dosage: UNK
     Route: 042
     Dates: start: 20080702, end: 20080713
  9. ALLOPURINOL [Concomitant]
     Route: 048
  10. SIGMART [Concomitant]
     Route: 048
  11. TAKEPRON [Concomitant]
     Route: 048
  12. DOGMATYL [Concomitant]
     Route: 048
  13. ALOSENN [Concomitant]
     Dosage: UNK
     Route: 048
     Dates: end: 20080710
  14. MERISLON [Concomitant]
     Dosage: UNK
     Route: 048
  15. SEROQUEL [Concomitant]
     Route: 048
  16. MEROPEN [Concomitant]
     Dosage: UNK
     Route: 042
     Dates: start: 20080717, end: 20080721

REACTIONS (1)
  - CARDIAC FAILURE [None]
